FAERS Safety Report 6126692-7 (Version None)
Quarter: 2009Q1

REPORT INFORMATION
  Report Type: 
  Country: None (occurrence: None)
  Receive Date: 20090320
  Receipt Date: 20090317
  Transmission Date: 20090719
  Serious: Yes (Life-Threatening, Other)
  Sender: FDA-Public Use
  Company Number: PHHY2009CA09270

PATIENT
  Sex: Female

DRUGS (1)
  1. ACLASTA [Suspect]
     Indication: OSTEOPOROSIS
     Dosage: UNK
     Dates: start: 20090306

REACTIONS (9)
  - APPARENT LIFE THREATENING EVENT [None]
  - DIZZINESS [None]
  - FATIGUE [None]
  - FRACTURE [None]
  - HEADACHE [None]
  - MYOCARDIAL INFARCTION [None]
  - PAIN [None]
  - PYREXIA [None]
  - TREMOR [None]
